FAERS Safety Report 18437989 (Version 2)
Quarter: 2020Q4

REPORT INFORMATION
  Report Type: Report from Study
  Country: US (occurrence: US)
  Receive Date: 20201029
  Receipt Date: 20201119
  Transmission Date: 20210114
  Serious: Yes (Hospitalization, Other)
  Sender: FDA-Public Use
  Company Number: US-TAKEDA-US202013761

PATIENT

DRUGS (9)
  1. TEDUGLUTIDE [Suspect]
     Active Substance: TEDUGLUTIDE
     Indication: SHORT-BOWEL SYNDROME
     Dosage: 3.3 MILLIGRAM, 1X/DAY:QD
     Route: 058
     Dates: start: 20200415
  2. TEDUGLUTIDE [Suspect]
     Active Substance: TEDUGLUTIDE
     Dosage: 0.33 MILLILITER, 1X/DAY:QD
     Route: 058
     Dates: start: 20200415
  3. TEDUGLUTIDE [Suspect]
     Active Substance: TEDUGLUTIDE
     Dosage: 0.33 MILLILITER, 1X/DAY:QD
     Route: 058
     Dates: start: 20200415
  4. TPN [AMINO ACIDS NOS;CARBOHYDRATES NOS;MINERALS NOS;VITAMINS NOS] [Concomitant]
     Active Substance: AMINO ACIDS\CARBOHYDRATES\MINERALS\VITAMINS
     Indication: PRODUCT USED FOR UNKNOWN INDICATION
  5. TEDUGLUTIDE [Suspect]
     Active Substance: TEDUGLUTIDE
     Indication: SHORT-BOWEL SYNDROME
     Dosage: 3.3 MILLIGRAM, 1X/DAY:QD
     Route: 058
     Dates: start: 20200415
  6. TEDUGLUTIDE [Suspect]
     Active Substance: TEDUGLUTIDE
     Indication: SHORT-BOWEL SYNDROME
     Dosage: 3.3 MILLIGRAM, 1X/DAY:QD
     Route: 058
     Dates: start: 20200415
  7. TEDUGLUTIDE [Suspect]
     Active Substance: TEDUGLUTIDE
     Dosage: 0.33 MILLILITER, 1X/DAY:QD
     Route: 058
     Dates: start: 20200415
  8. TEDUGLUTIDE [Suspect]
     Active Substance: TEDUGLUTIDE
     Indication: SHORT-BOWEL SYNDROME
     Dosage: 3.3 MILLIGRAM, 1X/DAY:QD
     Route: 058
     Dates: start: 20200415
  9. TEDUGLUTIDE [Suspect]
     Active Substance: TEDUGLUTIDE
     Dosage: 0.33 MILLILITER, 1X/DAY:QD
     Route: 058
     Dates: start: 20200415

REACTIONS (12)
  - Weight increased [Unknown]
  - Vascular device infection [Unknown]
  - Somnolence [Unknown]
  - Stoma complication [Not Recovered/Not Resolved]
  - Injection related reaction [Unknown]
  - Pyrexia [Unknown]
  - Pruritus [Unknown]
  - Nausea [Recovering/Resolving]
  - Hyperhidrosis [Unknown]
  - Pain [Unknown]
  - Gastrointestinal stoma output decreased [Unknown]
  - Gastrointestinal stoma output abnormal [Unknown]

NARRATIVE: CASE EVENT DATE: 20200415
